FAERS Safety Report 12102997 (Version 1)
Quarter: 2016Q1

REPORT INFORMATION
  Report Type: Spontaneous
  Country: US (occurrence: US)
  Receive Date: 20160222
  Receipt Date: 20160222
  Transmission Date: 20160526
  Serious: No
  Sender: FDA-Public Use
  Company Number: US-009507513-1602USA009534

PATIENT
  Age: 43 Year
  Sex: Female

DRUGS (3)
  1. SINEMET [Concomitant]
     Active Substance: CARBIDOPA\LEVODOPA
     Route: 048
  2. GRASTEK [Suspect]
     Active Substance: PHLEUM PRATENSE POLLEN
     Indication: SEASONAL ALLERGY
     Dosage: 2800 BIOEQUIVALENT ALLERGY UNITS DAILY
     Route: 060
     Dates: start: 201601, end: 20160215
  3. ESTROGENS (UNSPECIFIED) (+) PROGESTERONE [Concomitant]

REACTIONS (3)
  - Chest pain [Recovered/Resolved]
  - Oral pruritus [Recovered/Resolved]
  - Chest pain [Recovered/Resolved]

NARRATIVE: CASE EVENT DATE: 201601
